FAERS Safety Report 16926392 (Version 1)
Quarter: 2019Q4

REPORT INFORMATION
  Report Type: Spontaneous
  Country: FR (occurrence: FR)
  Receive Date: 20191016
  Receipt Date: 20191016
  Transmission Date: 20200122
  Serious: Yes (Hospitalization, Other)
  Sender: FDA-Public Use
  Company Number: FR-AKRON, INC.-2075740

PATIENT
  Age: 54 Year
  Sex: Male

DRUGS (3)
  1. MORPHINE SULFATE ORAL SOLUTION, CII [Suspect]
     Active Substance: MORPHINE SULFATE
     Route: 042
  2. COCAINE HYDROCHLORIDE. [Suspect]
     Active Substance: COCAINE HYDROCHLORIDE
  3. BUPRENORPHINE. [Suspect]
     Active Substance: BUPRENORPHINE

REACTIONS (5)
  - Substance abuse [Unknown]
  - Intentional product use issue [Unknown]
  - Nasal septum deviation [Unknown]
  - Cluster headache [Not Recovered/Not Resolved]
  - Facial bones fracture [Unknown]
